FAERS Safety Report 6249145-4 (Version None)
Quarter: 2009Q2

REPORT INFORMATION
  Report Type: 
  Country: None (occurrence: None)
  Receive Date: 20090624
  Receipt Date: 20090609
  Transmission Date: 20091009
  Serious: Yes (Hospitalization)
  Sender: FDA-Public Use
  Company Number: 2009AL003929

PATIENT
  Sex: Male

DRUGS (6)
  1. DIAZEPAM TAB [Suspect]
  2. VENLAFAXINE HCL [Suspect]
  3. OLANZAPINE [Concomitant]
  4. CLOZARIL [Concomitant]
  5. CHLORPROMAZINE [Concomitant]
  6. ALCOHOL [Concomitant]

REACTIONS (2)
  - INSOMNIA [None]
  - THINKING ABNORMAL [None]
